FAERS Safety Report 24902428 (Version 1)
Quarter: 2025Q1

REPORT INFORMATION
  Report Type: Spontaneous
  Country: EG (occurrence: EG)
  Receive Date: 20250130
  Receipt Date: 20250130
  Transmission Date: 20250408
  Serious: Yes (Other)
  Sender: ROCHE
  Company Number: EG-ROCHE-10000186573

PATIENT
  Sex: Male

DRUGS (3)
  1. OCREVUS [Suspect]
     Active Substance: OCRELIZUMAB
     Indication: Multiple sclerosis
     Route: 040
     Dates: start: 202307
  2. OCREVUS [Suspect]
     Active Substance: OCRELIZUMAB
     Route: 040
     Dates: start: 202401
  3. OCREVUS [Suspect]
     Active Substance: OCRELIZUMAB
     Route: 040
     Dates: start: 202407

REACTIONS (3)
  - Therapeutic response decreased [Not Recovered/Not Resolved]
  - Multiple sclerosis relapse [Unknown]
  - Suspected counterfeit product [Unknown]
